FAERS Safety Report 19609345 (Version 1)
Quarter: 2021Q3

REPORT INFORMATION
  Report Type: Report from Study
  Country: GB (occurrence: GB)
  Receive Date: 20210726
  Receipt Date: 20210726
  Transmission Date: 20211014
  Serious: Yes (Hospitalization)
  Sender: FDA-Public Use
  Company Number: GB-ACCORD-233019

PATIENT
  Age: 55 Year
  Sex: Male
  Weight: 59 kg

DRUGS (20)
  1. PARACETAMOL [Concomitant]
     Active Substance: ACETAMINOPHEN
     Indication: NAUSEA
     Dosage: TIME INTERVAL: 0.25 D
     Dates: start: 20210110
  2. ATEZOLIZUMAB. [Suspect]
     Active Substance: ATEZOLIZUMAB
     Indication: SMALL CELL LUNG CANCER EXTENSIVE STAGE
     Dosage: NEXT DOSE OF ATEZOLIZUMAB: 12/FEB/2021
     Dates: start: 20210114
  3. CHLORPHENAMINE/CHLORPHENAMINE MALEATE/CHLORPHENAMINE RESINATE/CHLORPHENAMINE TANNATE [Concomitant]
     Active Substance: CHLORPHENIRAMINE
     Dates: start: 20210114, end: 20210114
  4. CIPROFLOXACIN. [Concomitant]
     Active Substance: CIPROFLOXACIN
     Dates: start: 20210118, end: 20210122
  5. MORPHINE [Concomitant]
     Active Substance: MORPHINE
     Dates: start: 20201208
  6. PARACETAMOL [Concomitant]
     Active Substance: ACETAMINOPHEN
     Indication: NAUSEA
     Dates: start: 20210114, end: 20210114
  7. ETOPOSIDE. [Suspect]
     Active Substance: ETOPOSIDE
     Indication: SMALL CELL LUNG CANCER EXTENSIVE STAGE
     Dates: start: 20210213
  8. TOLVAPTAN [Concomitant]
     Active Substance: TOLVAPTAN
     Indication: VOMITING
     Dates: start: 20210111
  9. DALTEPARIN [Concomitant]
     Active Substance: DALTEPARIN
     Dates: start: 20210110
  10. DEXAMETHASONE. [Concomitant]
     Active Substance: DEXAMETHASONE
     Dates: start: 20210114, end: 20210114
  11. TRIMBOW [Concomitant]
     Active Substance: BECLOMETHASONE DIPROPIONATE\FORMOTEROL FUMARATE\GLYCOPYRROLATE
     Dates: start: 20201014
  12. SALBUTAMOL [Concomitant]
     Active Substance: ALBUTEROL
     Dates: start: 20201014
  13. ETOPOSIDE. [Suspect]
     Active Substance: ETOPOSIDE
     Indication: SMALL CELL LUNG CANCER EXTENSIVE STAGE
     Dates: start: 20210114
  14. METOCLOPRAMIDE. [Concomitant]
     Active Substance: METOCLOPRAMIDE
     Indication: NAUSEA
     Dosage: TIME INTERVAL: 0.33 D
     Dates: start: 20201112
  15. ONDANSETRON [Concomitant]
     Active Substance: ONDANSETRON
     Indication: VOMITING
     Dates: start: 20210110
  16. SODIUM CHLORIDE. [Concomitant]
     Active Substance: SODIUM CHLORIDE
     Dates: start: 20210111
  17. ZOPICLONE [Concomitant]
     Active Substance: ZOPICLONE
     Dates: start: 20201203
  18. FLUOXETINE [Concomitant]
     Active Substance: FLUOXETINE HYDROCHLORIDE
     Dates: start: 20200106
  19. CARBOPLATIN. [Suspect]
     Active Substance: CARBOPLATIN
     Indication: SMALL CELL LUNG CANCER EXTENSIVE STAGE
     Dates: start: 20210114
  20. ETOPOSIDE. [Suspect]
     Active Substance: ETOPOSIDE
     Indication: SMALL CELL LUNG CANCER EXTENSIVE STAGE
     Dates: start: 20210115, end: 20210116

REACTIONS (2)
  - Blood sodium decreased [Recovered/Resolved]
  - Diarrhoea [Recovered/Resolved]

NARRATIVE: CASE EVENT DATE: 20210128
